FAERS Safety Report 7948255-0 (Version None)
Quarter: 2011Q4

REPORT INFORMATION
  Report Type: 
  Country: None (occurrence: None)
  Receive Date: 20111130
  Receipt Date: 20111127
  Transmission Date: 20120403
  Serious: No
  Sender: FDA-Public Use
  Company Number: US-PFIZER INC-2011288585

PATIENT
  Sex: Male

DRUGS (1)
  1. VIAGRA [Suspect]
     Indication: PENIS DISORDER
     Dosage: UNK

REACTIONS (3)
  - PENILE PAIN [None]
  - WRONG TECHNIQUE IN DRUG USAGE PROCESS [None]
  - PENILE SWELLING [None]
